FAERS Safety Report 20269469 (Version 1)
Quarter: 2022Q1

REPORT INFORMATION
  Report Type: Spontaneous
  Country: US (occurrence: US)
  Receive Date: 20220101
  Receipt Date: 20220101
  Transmission Date: 20220423
  Serious: No
  Sender: FDA-Public Use
  Company Number: US-TAKEDA-2021TUS082944

PATIENT
  Sex: Female
  Weight: 91 kg

DRUGS (4)
  1. HYQVIA [Suspect]
     Active Substance: HUMAN IMMUNOGLOBULIN G\HYALURONIDASE RECOMBINANT HUMAN
     Indication: Blood immunoglobulin G abnormal
     Dosage: 40 GRAM
     Route: 058
     Dates: start: 202110
  2. ASACOL [Concomitant]
     Active Substance: MESALAMINE
     Route: 065
  3. LOSARTAN [Concomitant]
     Active Substance: LOSARTAN
     Route: 065
  4. ZITHROMAX [Concomitant]
     Active Substance: AZITHROMYCIN DIHYDRATE
     Indication: Dyspnoea
     Route: 065

REACTIONS (7)
  - Gastritis [Unknown]
  - Abdominal pain upper [Unknown]
  - Stomach mass [Unknown]
  - Infusion site swelling [Unknown]
  - Skin discolouration [Unknown]
  - Nausea [Unknown]
  - Wrong technique in product usage process [Unknown]
